FAERS Safety Report 8120190-7 (Version None)
Quarter: 2012Q1

REPORT INFORMATION
  Report Type: 
  Country: None (occurrence: None)
  Receive Date: 20120207
  Receipt Date: 20120130
  Transmission Date: 20120608
  Serious: Yes (Other)
  Sender: FDA-Public Use
  Company Number: US-BAYER-201035544NA

PATIENT
  Age: 28 Year
  Sex: Female
  Weight: 68.027 kg

DRUGS (3)
  1. CIPROFLOXACIN [Concomitant]
     Dosage: 250 MG, BID
     Dates: start: 20060509
  2. YAZ [Suspect]
     Indication: CONTRACEPTION
     Dosage: UNK
     Dates: start: 20060101, end: 20070101
  3. YASMIN [Suspect]
     Indication: CONTRACEPTION
     Dosage: UNK
     Dates: start: 20030101, end: 20060101

REACTIONS (9)
  - ANXIETY [None]
  - EMOTIONAL DISTRESS [None]
  - CHEST PAIN [None]
  - ARRHYTHMIA [None]
  - CONVULSION [None]
  - ANHEDONIA [None]
  - PALPITATIONS [None]
  - MYOCARDIAL INFARCTION [None]
  - PAIN [None]
